FAERS Safety Report 15723930 (Version 1)
Quarter: 2018Q4

REPORT INFORMATION
  Report Type: Spontaneous
  Country: US (occurrence: US)
  Receive Date: 20181214
  Receipt Date: 20181214
  Transmission Date: 20190205
  Serious: Yes (Death, Life-Threatening)
  Sender: FDA-Public Use
  Company Number: None

PATIENT
  Age: 88 Year
  Sex: Male
  Weight: 78.57 kg

DRUGS (16)
  1. DOCUSATE SODIUM. [Concomitant]
     Active Substance: DOCUSATE SODIUM
  2. METOPROLOL SUCCINATE. [Concomitant]
     Active Substance: METOPROLOL SUCCINATE
  3. OXYCODONE [Concomitant]
     Active Substance: OXYCODONE
  4. MIRALAX [Concomitant]
     Active Substance: POLYETHYLENE GLYCOL 3350
  5. ZYTIGA [Suspect]
     Active Substance: ABIRATERONE ACETATE
     Indication: PROSTATE CANCER
     Route: 048
     Dates: start: 20181115
  6. VITAMIN D [Concomitant]
     Active Substance: CHOLECALCIFEROL
  7. ZETIA [Concomitant]
     Active Substance: EZETIMIBE
  8. LISINOPRIL. [Concomitant]
     Active Substance: LISINOPRIL
  9. ASPIRIN. [Concomitant]
     Active Substance: ASPIRIN
  10. LUPRON DEPOT [Concomitant]
     Active Substance: LEUPROLIDE ACETATE
  11. SENNA [Concomitant]
     Active Substance: SENNA LEAF\SENNOSIDES\SENNOSIDES A AND B
  12. ATORVASTATIN [Concomitant]
     Active Substance: ATORVASTATIN
  13. FINASTERIDE. [Concomitant]
     Active Substance: FINASTERIDE
  14. MULTIVITAMIN [Concomitant]
     Active Substance: VITAMINS
  15. WARFARIN [Concomitant]
     Active Substance: WARFARIN
  16. PREDNISONE. [Concomitant]
     Active Substance: PREDNISONE

REACTIONS (1)
  - Death [None]

NARRATIVE: CASE EVENT DATE: 20181212
